FAERS Safety Report 6999975-6 (Version None)
Quarter: 2010Q3

REPORT INFORMATION
  Report Type: 
  Country: None (occurrence: None)
  Receive Date: 20100920
  Receipt Date: 20100415
  Transmission Date: 20110219
  Serious: No
  Sender: FDA-Public Use
  Company Number: US-ASTRAZENECA-2007UW01933

PATIENT
  Age: 15503 Day
  Sex: Female
  Weight: 63.5 kg

DRUGS (13)
  1. SEROQUEL [Suspect]
     Indication: SLEEP DISORDER
     Route: 048
     Dates: start: 19980624, end: 20000101
  2. SEROQUEL [Suspect]
     Indication: DEPRESSION
     Route: 048
     Dates: start: 19980624, end: 20000101
  3. SEROQUEL [Suspect]
     Dosage: 25 MG, THREE AT NIGHT
     Route: 048
     Dates: start: 19990322
  4. SEROQUEL [Suspect]
     Dosage: 25 MG, THREE AT NIGHT
     Route: 048
     Dates: start: 19990322
  5. SEROQUEL [Suspect]
     Route: 048
     Dates: start: 20050601, end: 20050815
  6. SEROQUEL [Suspect]
     Route: 048
     Dates: start: 20050601, end: 20050815
  7. KLONOPIN [Concomitant]
     Dates: start: 20050101
  8. LORAZEPAM [Concomitant]
     Dates: start: 20050217
  9. LEXAPRO [Concomitant]
     Dates: start: 20050826
  10. GLUCOPHAGE [Concomitant]
     Dosage: 850 TWO TIMES A DAY
     Route: 048
     Dates: start: 20020102
  11. LIPITOR [Concomitant]
     Route: 048
     Dates: start: 20020102
  12. EFFEXOR XR [Concomitant]
     Dosage: 75 TWO TIMES A DAY
     Dates: start: 20020102
  13. WELLBUTRIN [Concomitant]
     Dates: start: 20050930

REACTIONS (3)
  - OSTEOPENIA [None]
  - ROAD TRAFFIC ACCIDENT [None]
  - TYPE 2 DIABETES MELLITUS [None]
